FAERS Safety Report 19478892 (Version 9)
Quarter: 2022Q2

REPORT INFORMATION
  Report Type: Report from Study
  Country: MX (occurrence: MX)
  Receive Date: 20210630
  Receipt Date: 20220509
  Transmission Date: 20220720
  Serious: Yes (Other)
  Sender: FDA-Public Use
  Company Number: NVSC2021MX146192

PATIENT
  Age: 54 Year
  Sex: Female
  Weight: 70 kg

DRUGS (2)
  1. TASIGNA [Suspect]
     Active Substance: NILOTINIB
     Indication: Chronic myeloid leukaemia
     Dosage: 800 MG, QD
     Route: 048
  2. TASIGNA [Suspect]
     Active Substance: NILOTINIB
     Dosage: 400 MG, BID (8 YEARS AGO)
     Route: 048

REACTIONS (31)
  - Fibromyalgia [Not Recovered/Not Resolved]
  - Gait inability [Unknown]
  - Pain in extremity [Unknown]
  - Bone pain [Not Recovered/Not Resolved]
  - COVID-19 [Not Recovered/Not Resolved]
  - Malaise [Not Recovered/Not Resolved]
  - Discomfort [Unknown]
  - Rheumatoid factor positive [Unknown]
  - Swelling [Unknown]
  - Limb discomfort [Not Recovered/Not Resolved]
  - Arthropathy [Unknown]
  - Cyst [Unknown]
  - Rheumatic disorder [Unknown]
  - Breast cyst [Unknown]
  - Rotator cuff syndrome [Unknown]
  - Sneezing [Unknown]
  - Hot flush [Unknown]
  - Cytogenetic analysis abnormal [Unknown]
  - Fatigue [Not Recovered/Not Resolved]
  - Pain [Not Recovered/Not Resolved]
  - Pollakiuria [Unknown]
  - Back pain [Unknown]
  - Arthralgia [Unknown]
  - Anaemia [Unknown]
  - Cough [Unknown]
  - Inappropriate schedule of product administration [Unknown]
  - Oropharyngeal pain [Unknown]
  - Ear discomfort [Unknown]
  - Rhinorrhoea [Unknown]
  - Agitation [Unknown]
  - Throat tightness [Unknown]

NARRATIVE: CASE EVENT DATE: 20201101
